FAERS Safety Report 25644411 (Version 2)
Quarter: 2025Q3

REPORT INFORMATION
  Report Type: Spontaneous
  Country: US (occurrence: US)
  Receive Date: 20250805
  Receipt Date: 20250828
  Transmission Date: 20251021
  Serious: Yes (Hospitalization)
  Sender: LUPIN
  Company Number: US-LUPIN PHARMACEUTICALS INC.-2025-06782

PATIENT
  Age: 72 Year
  Weight: 61.224 kg

DRUGS (1)
  1. ALBUTEROL SULFATE [Suspect]
     Active Substance: ALBUTEROL SULFATE
     Indication: Chronic obstructive pulmonary disease

REACTIONS (5)
  - Chronic obstructive pulmonary disease [Unknown]
  - Adverse event [Unknown]
  - Oxygen saturation decreased [Unknown]
  - Memory impairment [Unknown]
  - Device delivery system issue [Unknown]
